FAERS Safety Report 14818474 (Version 1)
Quarter: 2018Q2

REPORT INFORMATION
  Report Type: Spontaneous
  Country: US (occurrence: US)
  Receive Date: 20180427
  Receipt Date: 20180427
  Transmission Date: 20180711
  Serious: No
  Sender: FDA-Public Use
  Company Number: US-TEVA-2018-US-866100

PATIENT
  Sex: Male

DRUGS (1)
  1. SILDENAFIL TEVA 50 MG, FILMOMHULDE TABLETTEN [Suspect]
     Active Substance: SILDENAFIL
     Indication: ERECTILE DYSFUNCTION
     Dates: start: 201802

REACTIONS (2)
  - Drug ineffective [Unknown]
  - Product substitution issue [Unknown]
